FAERS Safety Report 15386038 (Version 1)
Quarter: 2018Q3

REPORT INFORMATION
  Report Type: Spontaneous
  Country: FR (occurrence: FR)
  Receive Date: 20180914
  Receipt Date: 20180914
  Transmission Date: 20181010
  Serious: Yes (Hospitalization)
  Sender: FDA-Public Use
  Company Number: FR-PFIZER INC-2018367714

PATIENT
  Age: 73 Year
  Sex: Male

DRUGS (3)
  1. TAHOR [Suspect]
     Active Substance: ATORVASTATIN CALCIUM
     Indication: DYSLIPIDAEMIA
     Dosage: 40 MG, 1X/DAY (AT EVENING)
     Route: 048
     Dates: start: 2010
  2. KARDEGIC [Interacting]
     Active Substance: ASPIRIN DL-LYSINE
     Indication: THROMBOANGIITIS OBLITERANS
     Dosage: 0?1?0, 75 MG, 1X/DAY
     Route: 048
     Dates: start: 201409, end: 20180123
  3. PREVISCAN [FLUINDIONE] [Interacting]
     Active Substance: FLUINDIONE
     Indication: THROMBOANGIITIS OBLITERANS
     Dosage: 0?0?0.5, 10 MG, 1X/DAY
     Route: 048
     Dates: start: 20160419, end: 20180123

REACTIONS (4)
  - Rectal haemorrhage [Recovered/Resolved]
  - Melaena [Recovered/Resolved]
  - Drug interaction [Unknown]
  - Haemorrhagic anaemia [Recovered/Resolved]

NARRATIVE: CASE EVENT DATE: 20180123
